FAERS Safety Report 8015419-X (Version None)
Quarter: 2011Q4

REPORT INFORMATION
  Report Type: 
  Country: None (occurrence: None)
  Receive Date: 20111230
  Receipt Date: 20111219
  Transmission Date: 20120403
  Serious: Yes (Other)
  Sender: FDA-Public Use
  Company Number: US-BRISTOL-MYERS SQUIBB COMPANY-16306557

PATIENT
  Sex: Male

DRUGS (1)
  1. AVALIDE [Suspect]
     Indication: HYPERTENSION
     Dates: start: 20101015, end: 20110117

REACTIONS (3)
  - HYPERTENSION [None]
  - RETINAL ARTERY EMBOLISM [None]
  - VITREOUS HAEMORRHAGE [None]
